FAERS Safety Report 5034421-3 (Version None)
Quarter: 2006Q2

REPORT INFORMATION
  Report Type: 
  Country: None (occurrence: None)
  Receive Date: 20060620
  Receipt Date: 20060609
  Transmission Date: 20061013
  Serious: Yes (Hospitalization)
  Sender: FDA-Public Use
  Company Number: 200610777BYL

PATIENT
  Age: 66 Year
  Sex: Male

DRUGS (5)
  1. GLUCOBAY [Suspect]
     Dosage: ORAL
     Route: 048
  2. ASPIRIN [Suspect]
     Dosage: ORAL
     Route: 048
  3. TICPILONE (TICLOPIDINE HYDROCHLORIDE) [Suspect]
  4. CARVEDILOL [Suspect]
     Dosage: ORAL
     Route: 048
  5. LOSARTAN POTASSIUM [Suspect]
     Dosage: ORAL
     Route: 048

REACTIONS (1)
  - EOSINOPHIL COUNT INCREASED [None]
